FAERS Safety Report 25088290 (Version 5)
Quarter: 2025Q3

REPORT INFORMATION
  Report Type: Spontaneous
  Country: JP (occurrence: JP)
  Receive Date: 20250318
  Receipt Date: 20250708
  Transmission Date: 20251021
  Serious: Yes (Hospitalization, Other)
  Sender: JOHNSON AND JOHNSON
  Company Number: JP-JNJFOC-20250350063

PATIENT
  Age: 7 Decade
  Sex: Male

DRUGS (3)
  1. RYBREVANT [Suspect]
     Active Substance: AMIVANTAMAB-VMJW
     Indication: Non-small cell lung cancer
     Route: 041
     Dates: start: 20250312, end: 20250312
  2. PEMETREXED [Suspect]
     Active Substance: PEMETREXED
     Indication: Non-small cell lung cancer
     Route: 041
     Dates: start: 20250312
  3. CARBOPLATIN [Suspect]
     Active Substance: CARBOPLATIN
     Indication: Non-small cell lung cancer
     Dosage: AUC5
     Route: 041
     Dates: start: 20250312

REACTIONS (8)
  - Shock [Recovered/Resolved]
  - Infusion related reaction [Recovered/Resolved]
  - Pancreatitis acute [Recovering/Resolving]
  - Renal infarct [Recovering/Resolving]
  - Splenic infarction [Recovering/Resolving]
  - Blood pressure decreased [Recovered/Resolved]
  - Bradycardia [Recovered/Resolved]
  - Walled-off pancreatic necrosis [Recovering/Resolving]

NARRATIVE: CASE EVENT DATE: 20250101
